FAERS Safety Report 12709494 (Version 9)
Quarter: 2018Q1

REPORT INFORMATION
  Report Type: Report from Study
  Country: DE (occurrence: DE)
  Receive Date: 20160902
  Receipt Date: 20180221
  Transmission Date: 20180508
  Serious: Yes (Hospitalization, Other)
  Sender: FDA-Public Use
  Company Number: DE-ROCHE-1824874

PATIENT
  Age: 77 Year
  Sex: Female

DRUGS (1)
  1. RITUXIMAB. [Suspect]
     Active Substance: RITUXIMAB
     Indication: RHEUMATOID ARTHRITIS
     Dosage: MOST RECENT DOSE ON 29/APR/2016, 11/NOV/2016, 22/JUN/2017 (500 MG)
     Route: 042

REACTIONS (20)
  - Pain [Recovered/Resolved]
  - Urinary tract infection [Not Recovered/Not Resolved]
  - Osteoarthritis [Unknown]
  - Atrial fibrillation [Unknown]
  - Brain stem infarction [Unknown]
  - Escherichia urinary tract infection [Unknown]
  - Gastritis [Unknown]
  - Hypogammaglobulinaemia [Unknown]
  - Rheumatoid arthritis [Not Recovered/Not Resolved]
  - Back pain [Unknown]
  - Cystitis escherichia [Unknown]
  - Sciatica [Recovered/Resolved]
  - Pain in extremity [Unknown]
  - Rheumatoid arthritis [Unknown]
  - Fibromyalgia [Unknown]
  - Headache [Recovered/Resolved]
  - Pulmonary embolism [Unknown]
  - Spinal column stenosis [Unknown]
  - Spinal cord ischaemia [Unknown]
  - Ataxia [Unknown]

NARRATIVE: CASE EVENT DATE: 201605
